FAERS Safety Report 13315130 (Version 4)
Quarter: 2017Q2

REPORT INFORMATION
  Report Type: Spontaneous
  Country: PT (occurrence: PT)
  Receive Date: 20170309
  Receipt Date: 20170405
  Transmission Date: 20170830
  Serious: Yes (Life-Threatening, Hospitalization, Other)
  Sender: FDA-Public Use
  Company Number: PT-009507513-1703PRT003916

PATIENT
  Age: 65 Year
  Sex: Male
  Weight: 70 kg

DRUGS (4)
  1. BRIDION [Suspect]
     Active Substance: SUGAMMADEX
     Indication: NEUROMUSCULAR BLOCKADE REVERSAL
     Dosage: 200 MG, ONCE
     Route: 040
     Dates: start: 20170307, end: 20170307
  2. TIMOLOL MALEATE. [Concomitant]
     Active Substance: TIMOLOL MALEATE
     Indication: OCULAR HYPERTENSION
     Dosage: 2 GTT, QD, ON THE LEFT EYE
     Route: 047
  3. TIMOLOL MALEATE. [Concomitant]
     Active Substance: TIMOLOL MALEATE
     Indication: PRODUCT USED FOR UNKNOWN INDICATION
  4. ROCURONIUM BROMIDE. [Concomitant]
     Active Substance: ROCURONIUM BROMIDE
     Dosage: 50 MG FOR INDUCTION; 200 MG INFUSION; CONTINUOUS
     Dates: start: 20170307, end: 20170307

REACTIONS (4)
  - Ventricular tachycardia [Recovered/Resolved]
  - Hypotension [Recovered/Resolved]
  - Extrasystoles [Recovered/Resolved]
  - Haemodynamic instability [Recovered/Resolved]

NARRATIVE: CASE EVENT DATE: 20170307
